FAERS Safety Report 11121709 (Version 1)
Quarter: 2015Q2

REPORT INFORMATION
  Report Type: Spontaneous
  Country: US (occurrence: US)
  Receive Date: 20150519
  Receipt Date: 20150519
  Transmission Date: 20150821
  Serious: No
  Sender: FDA-Public Use
  Company Number: US-SHIRE-US201504320

PATIENT
  Age: 8 Year
  Sex: Male
  Weight: 25.4 kg

DRUGS (4)
  1. MONTELUKAST [Concomitant]
     Active Substance: MONTELUKAST SODIUM
     Indication: SEASONAL ALLERGY
     Dosage: 5 MG, 1X/DAY:QD
     Route: 048
     Dates: start: 201503
  2. VYVANSE [Suspect]
     Active Substance: LISDEXAMFETAMINE DIMESYLATE
     Indication: ATTENTION DEFICIT/HYPERACTIVITY DISORDER
     Dosage: 30 MG (CAPSULE CONTENTS MIXED IN 10CC OF WATER AND ONLY INGESTS 7.5CC OF WATER) , 1X/DAY:QD
     Route: 048
     Dates: start: 201502
  3. CLARITIN [Concomitant]
     Active Substance: LORATADINE
     Indication: SEASONAL ALLERGY
     Dosage: 10 MG, 1X/DAY:QD
     Route: 048
     Dates: start: 201504
  4. MONTELUKAST [Concomitant]
     Active Substance: MONTELUKAST SODIUM
     Indication: ASTHMA

REACTIONS (6)
  - Abnormal behaviour [Recovered/Resolved]
  - Negativism [Recovered/Resolved]
  - Drug prescribing error [Not Recovered/Not Resolved]
  - Disturbance in social behaviour [Recovered/Resolved]
  - Product quality issue [Unknown]
  - Incorrect dose administered [Not Recovered/Not Resolved]

NARRATIVE: CASE EVENT DATE: 201502
